FAERS Safety Report 9484876 (Version 1)
Quarter: 2013Q3

REPORT INFORMATION
  Report Type: Spontaneous
  Country: CA (occurrence: CA)
  Receive Date: 20130828
  Receipt Date: 20130828
  Transmission Date: 20140515
  Serious: Yes (Other)
  Sender: FDA-Public Use
  Company Number: CA-AMGEN-KDL442878

PATIENT
  Age: 19 Year
  Sex: Male

DRUGS (2)
  1. ENBREL [Suspect]
     Indication: ANKYLOSING SPONDYLITIS
     Dosage: UNK UNK, QWK
     Route: 065
     Dates: start: 20100802
  2. ENBREL [Suspect]
     Route: 065
     Dates: start: 20100802

REACTIONS (5)
  - Syncope [Unknown]
  - Nasopharyngitis [Unknown]
  - Injection site reaction [Unknown]
  - Injection site pruritus [Unknown]
  - Rash [Unknown]
